FAERS Safety Report 24191138 (Version 2)
Quarter: 2025Q2

REPORT INFORMATION
  Report Type: Spontaneous
  Country: US (occurrence: US)
  Receive Date: 20240808
  Receipt Date: 20250626
  Transmission Date: 20250717
  Serious: No
  Sender: ABBVIE
  Company Number: US-ABBVIE-5865738

PATIENT

DRUGS (2)
  1. SYNTHROID [Suspect]
     Active Substance: LEVOTHYROXINE SODIUM
     Indication: Hypothyroidism
     Route: 048
  2. SYNTHROID [Suspect]
     Active Substance: LEVOTHYROXINE SODIUM
     Indication: Hypothyroidism
     Route: 048

REACTIONS (8)
  - Blood thyroid stimulating hormone increased [Unknown]
  - Product lot number issue [Unknown]
  - Blood thyroid stimulating hormone decreased [Unknown]
  - Wrong technique in product usage process [Unknown]
  - Insomnia [Unknown]
  - Hyperhidrosis [Unknown]
  - Brain fog [Unknown]
  - Product expiration date issue [Unknown]
